FAERS Safety Report 17001724 (Version 1)
Quarter: 2019Q4

REPORT INFORMATION
  Report Type: Spontaneous
  Country: GB (occurrence: GB)
  Receive Date: 20191106
  Receipt Date: 20191106
  Transmission Date: 20200122
  Serious: Yes (Other)
  Sender: FDA-Public Use
  Company Number: GB-TEVA-2019-GB-1131169

PATIENT
  Age: 90 Year
  Sex: Male
  Weight: 68.1 kg

DRUGS (9)
  1. ESOMEPRAZOLE. [Concomitant]
     Active Substance: ESOMEPRAZOLE MAGNESIUM
  2. FINASTERIDE. [Concomitant]
     Active Substance: FINASTERIDE
  3. BISOPROLOL [Concomitant]
     Active Substance: BISOPROLOL
  4. APIXABAN [Interacting]
     Active Substance: APIXABAN
     Indication: ANTICOAGULANT THERAPY
     Dosage: 10 MG 1 DAYS
     Route: 048
  5. DIGOXIN. [Concomitant]
     Active Substance: DIGOXIN
  6. LEVOTHYROXINE. [Concomitant]
     Active Substance: LEVOTHYROXINE
  7. FUROSEMIDE. [Concomitant]
     Active Substance: FUROSEMIDE
  8. CICLOSPORIN [Suspect]
     Active Substance: CYCLOSPORINE
     Indication: LIVER TRANSPLANT
     Dosage: 100 MG 1 DAYS
     Route: 048
  9. WARFARIN [Concomitant]
     Active Substance: WARFARIN

REACTIONS (2)
  - Anticoagulation drug level increased [Not Recovered/Not Resolved]
  - Drug interaction [Not Recovered/Not Resolved]

NARRATIVE: CASE EVENT DATE: 20190908
